FAERS Safety Report 5801425-X (Version None)
Quarter: 2008Q3

REPORT INFORMATION
  Report Type: 
  Country: None (occurrence: None)
  Receive Date: 20080702
  Receipt Date: 20080624
  Transmission Date: 20090109
  Serious: Yes (Hospitalization)
  Sender: FDA-Public Use
  Company Number: 14473

PATIENT
  Sex: Male

DRUGS (2)
  1. MORPHINE SULFATE [Suspect]
     Indication: CANCER PAIN
     Dosage: 30 MG Q12H ORALLY
     Route: 048
     Dates: start: 20080418
  2. MORPHINE SULFATE [Suspect]
     Indication: RENAL CANCER
     Dosage: 30 MG Q12H ORALLY
     Route: 048
     Dates: start: 20080418

REACTIONS (7)
  - ABASIA [None]
  - BACK INJURY [None]
  - BALANCE DISORDER [None]
  - FALL [None]
  - FEELING ABNORMAL [None]
  - OVERDOSE [None]
  - PHARMACEUTICAL PRODUCT COMPLAINT [None]
